FAERS Safety Report 8139358-9 (Version None)
Quarter: 2012Q1

REPORT INFORMATION
  Report Type: 
  Country: None (occurrence: None)
  Receive Date: 20120215
  Receipt Date: 20120213
  Transmission Date: 20120608
  Serious: Yes (Hospitalization)
  Sender: FDA-Public Use
  Company Number: US-B.I. PHARMACEUTICALS,INC./RIDGEFIELD-2012-BP-02762BP

PATIENT
  Age: 92 Year
  Sex: Female

DRUGS (5)
  1. TOPROL-XL [Concomitant]
     Indication: HYPERTENSION
  2. NAMENDA [Concomitant]
     Indication: DEMENTIA ALZHEIMER'S TYPE
  3. PRADAXA [Suspect]
     Dosage: 150 MG
     Route: 048
     Dates: start: 20101201
  4. SIMVASTATIN [Concomitant]
     Indication: BLOOD CHOLESTEROL INCREASED
  5. LASIX [Concomitant]

REACTIONS (1)
  - PNEUMONIA [None]
